FAERS Safety Report 4541672-0 (Version None)
Quarter: 2004Q4

REPORT INFORMATION
  Report Type: 
  Country: None (occurrence: None)
  Receive Date: 20041227
  Receipt Date: 20041209
  Transmission Date: 20050328
  Serious: Yes (Hospitalization)
  Sender: FDA-Public Use
  Company Number: 2004BI001246

PATIENT
  Age: 51 Year
  Sex: Male

DRUGS (4)
  1. AVONEX [Suspect]
     Indication: MULTIPLE SCLEROSIS
     Dosage: 30 UG;QW;IM
     Route: 030
     Dates: start: 20040601
  2. REMERON [Concomitant]
  3. FOSAMAX [Concomitant]
  4. IV STEROIDS (NOS) [Concomitant]

REACTIONS (5)
  - BENIGN PROSTATIC HYPERPLASIA [None]
  - BLADDER DISORDER [None]
  - CHILLS [None]
  - VISUAL DISTURBANCE [None]
  - WEIGHT DECREASED [None]
